FAERS Safety Report 4302293-8 (Version None)
Quarter: 2004Q1

REPORT INFORMATION
  Report Type: 
  Country: None (occurrence: None)
  Receive Date: 20040223
  Receipt Date: 20040213
  Transmission Date: 20041129
  Serious: Yes (Death, Hospitalization)
  Sender: FDA-Public Use
  Company Number: WAES 0402AUS00118

PATIENT
  Age: 85 Year
  Sex: Female

DRUGS (6)
  1. ASPIRIN [Concomitant]
  2. INFLUENZA VIRUS VACCINE (UNSPECIFIED) [Suspect]
     Indication: INFLUENZA IMMUNISATION
     Dates: start: 20011111, end: 20011111
  3. OMEPRAZOLE [Concomitant]
     Indication: OESOPHAGEAL DISORDER
  4. PREDNISOLONE [Concomitant]
     Indication: ARTHRITIS
  5. RALOXIFENE HYDROCHLORIDE [Concomitant]
  6. ZOCOR [Suspect]
     Route: 048

REACTIONS (25)
  - ABDOMINAL PAIN [None]
  - ALBUMINURIA [None]
  - ANOREXIA [None]
  - ARTHRALGIA [None]
  - ASTHENIA [None]
  - ATAXIA [None]
  - BACK PAIN [None]
  - BLOOD CREATINE PHOSPHOKINASE INCREASED [None]
  - CHEST PAIN [None]
  - DEATH [None]
  - DEHYDRATION [None]
  - DIARRHOEA [None]
  - FACE OEDEMA [None]
  - FATIGUE [None]
  - HEADACHE [None]
  - HYPERCALCAEMIA [None]
  - HYPERTENSION [None]
  - HYPOKALAEMIA [None]
  - MALAISE [None]
  - MYALGIA [None]
  - PYREXIA [None]
  - RENAL FAILURE ACUTE [None]
  - SEPSIS [None]
  - UPPER RESPIRATORY TRACT INFECTION [None]
  - URINARY RETENTION [None]
